FAERS Safety Report 7096408-9 (Version None)
Quarter: 2010Q4

REPORT INFORMATION
  Report Type: 
  Country: None (occurrence: None)
  Receive Date: 20101110
  Receipt Date: 20101110
  Transmission Date: 20110411
  Serious: Yes (Death)
  Sender: FDA-Public Use
  Company Number: None

PATIENT
  Age: 61 Year
  Sex: Male

DRUGS (9)
  1. ARZERRA [Suspect]
     Indication: CHRONIC LYMPHOCYTIC LEUKAEMIA
     Dosage: 300 MG X 1. PROTOCL IV 041 2000 MG
     Dates: start: 20100721
  2. ARZERRA [Suspect]
     Indication: CHRONIC LYMPHOCYTIC LEUKAEMIA
     Dosage: 300 MG X 1. PROTOCL IV 041 2000 MG
     Dates: start: 20100728
  3. ARZERRA [Suspect]
     Indication: CHRONIC LYMPHOCYTIC LEUKAEMIA
     Dosage: 300 MG X 1. PROTOCL IV 041 2000 MG
     Dates: start: 20100804
  4. ARZERRA [Suspect]
     Indication: CHRONIC LYMPHOCYTIC LEUKAEMIA
     Dosage: 300 MG X 1. PROTOCL IV 041 2000 MG
     Dates: start: 20100811
  5. ARZERRA [Suspect]
     Indication: CHRONIC LYMPHOCYTIC LEUKAEMIA
     Dosage: 300 MG X 1. PROTOCL IV 041 2000 MG
     Dates: start: 20100818
  6. ARZERRA [Suspect]
     Indication: CHRONIC LYMPHOCYTIC LEUKAEMIA
     Dosage: 300 MG X 1. PROTOCL IV 041 2000 MG
     Dates: start: 20100825
  7. ARZERRA [Suspect]
     Indication: CHRONIC LYMPHOCYTIC LEUKAEMIA
     Dosage: 300 MG X 1. PROTOCL IV 041 2000 MG
     Dates: start: 20100901
  8. ARZERRA [Suspect]
     Indication: CHRONIC LYMPHOCYTIC LEUKAEMIA
     Dosage: 300 MG X 1. PROTOCL IV 041 2000 MG
     Dates: start: 20100908
  9. ARZERRA [Suspect]
     Indication: CHRONIC LYMPHOCYTIC LEUKAEMIA
     Dosage: 300 MG X 1. PROTOCL IV 041 2000 MG
     Dates: start: 20101006

REACTIONS (2)
  - PERITONITIS BACTERIAL [None]
  - SEPSIS [None]
